FAERS Safety Report 14986864 (Version 1)
Quarter: 2018Q2

REPORT INFORMATION
  Report Type: Spontaneous
  Country: CN (occurrence: CN)
  Receive Date: 20180608
  Receipt Date: 20180608
  Transmission Date: 20180711
  Serious: Yes (Hospitalization)
  Sender: FDA-Public Use
  Company Number: CN-GLENMARK PHARMACEUTICALS-2018GMK035881

PATIENT
  Age: 62 Year
  Sex: Female

DRUGS (6)
  1. SULFAMETHOXAZOLE/TRIMETHOPRIM [Suspect]
     Active Substance: SULFAMETHOXAZOLE\TRIMETHOPRIM
     Indication: PULMONARY NOCARDIOSIS
     Dosage: 0.96 G, BID
     Route: 048
  2. PENICILLIN                         /00000901/ [Suspect]
     Active Substance: PENICILLIN G
     Indication: CUTANEOUS NOCARDIOSIS
  3. SULFAMETHOXAZOLE/TRIMETHOPRIM [Suspect]
     Active Substance: SULFAMETHOXAZOLE\TRIMETHOPRIM
     Indication: CUTANEOUS NOCARDIOSIS
  4. CEFEPIME HYDROCHLORIDE. [Suspect]
     Active Substance: CEFEPIME HYDROCHLORIDE
     Indication: PULMONARY NOCARDIOSIS
     Dosage: 1 G, BID
     Route: 065
  5. CEFEPIME HYDROCHLORIDE. [Suspect]
     Active Substance: CEFEPIME HYDROCHLORIDE
     Indication: CUTANEOUS NOCARDIOSIS
  6. PENICILLIN                         /00000901/ [Suspect]
     Active Substance: PENICILLIN G
     Indication: PULMONARY NOCARDIOSIS
     Dosage: 9.6 MILLION IU, BID, EVERY 6 HOURS
     Route: 042

REACTIONS (1)
  - Treatment failure [Unknown]
